FAERS Safety Report 4300792-6 (Version None)
Quarter: 2004Q1

REPORT INFORMATION
  Report Type: 
  Country: None (occurrence: None)
  Receive Date: 20040218
  Receipt Date: 20040202
  Transmission Date: 20041129
  Serious: Yes (Other)
  Sender: FDA-Public Use
  Company Number: USA031049437

PATIENT
  Age: 57 Year
  Sex: Female
  Weight: 55 kg

DRUGS (5)
  1. FORTEO [Suspect]
     Indication: OSTEOPOROSIS
     Dosage: 20 UG/DAY
     Dates: start: 20030929
  2. PREDNISONE [Concomitant]
  3. METHOTREXATE [Concomitant]
  4. IMURAN [Concomitant]
  5. PLAQUENIL [Concomitant]

REACTIONS (4)
  - CLAVICLE FRACTURE [None]
  - FALL [None]
  - INJECTION SITE HAEMORRHAGE [None]
  - PHARMACEUTICAL PRODUCT COMPLAINT [None]
